FAERS Safety Report 7498669-0 (Version None)
Quarter: 2011Q2

REPORT INFORMATION
  Report Type: 
  Country: None (occurrence: None)
  Receive Date: 20110524
  Receipt Date: 20110517
  Transmission Date: 20111010
  Serious: Yes (Hospitalization, Other)
  Sender: FDA-Public Use
  Company Number: CA-US-EMD SERONO, INC.-230287K09CAN

PATIENT
  Sex: Female

DRUGS (9)
  1. AD (NATURAL CHINESE PRODUCT) [Concomitant]
     Indication: LIVER DISORDER
  2. CALCIUM CARBONATE [Concomitant]
  3. ALENDRONATE SODIUM [Concomitant]
     Indication: OSTEOPOROSIS
  4. CRESTOR [Concomitant]
  5. REBIF [Suspect]
     Indication: RELAPSING-REMITTING MULTIPLE SCLEROSIS
     Dates: start: 20030903, end: 20080101
  6. ACETAMINOPHEN [Concomitant]
  7. REBIF [Suspect]
     Dates: start: 20090209
  8. TEGRETOL [Concomitant]
  9. SYNTHROID [Concomitant]

REACTIONS (14)
  - SINUSITIS [None]
  - DIZZINESS POSTURAL [None]
  - INJECTION SITE MASS [None]
  - INJECTION SITE PAIN [None]
  - FALL [None]
  - ASTHENIA [None]
  - GLAUCOMA [None]
  - DIZZINESS [None]
  - PAIN [None]
  - MALAISE [None]
  - THYROID MASS [None]
  - GASTROOESOPHAGEAL REFLUX DISEASE [None]
  - HEADACHE [None]
  - MULTIPLE SCLEROSIS RELAPSE [None]
